FAERS Safety Report 4645504-1 (Version None)
Quarter: 2005Q2

REPORT INFORMATION
  Report Type: 
  Country: None (occurrence: None)
  Receive Date: 20050331
  Receipt Date: 20050208
  Transmission Date: 20051028
  Serious: Yes (Hospitalization)
  Sender: FDA-Public Use
  Company Number: 05P-163-0289894-00

PATIENT
  Age: 71 Year
  Sex: Female
  Weight: 101 kg

DRUGS (6)
  1. HUMIRA [Suspect]
     Indication: RHEUMATOID ARTHRITIS
     Dosage: 40 MG, 1 IN 2 WK, SUBCUTANEOUS
     Route: 058
     Dates: start: 20040901, end: 20041201
  2. HYDROXYCHLOROQUINE PHOSPHATE [Concomitant]
  3. PREDNISONE TAB [Concomitant]
  4. LEVOTHYROXINE SODIUM [Concomitant]
  5. ATORVASTATIN [Concomitant]
  6. KADIAN [Concomitant]

REACTIONS (2)
  - INFLUENZA [None]
  - URINARY TRACT INFECTION [None]
